FAERS Safety Report 24034383 (Version 1)
Quarter: 2024Q3

REPORT INFORMATION
  Report Type: Spontaneous
  Country: GB (occurrence: GB)
  Receive Date: 20240701
  Receipt Date: 20240701
  Transmission Date: 20241017
  Serious: Yes (Other)
  Sender: Teyro Labs
  Company Number: GB-TEYRO-2024-TY-000208

PATIENT
  Age: 4 Week

DRUGS (3)
  1. CARBOPLATIN [Suspect]
     Active Substance: CARBOPLATIN
     Indication: Retinoblastoma
     Dosage: MEAN DOSE OF 280 MG/M2 FOR THE FIRST 2 CYCLES
     Route: 065
  2. CARBOPLATIN [Suspect]
     Active Substance: CARBOPLATIN
     Dosage: 225 MG/M2, 3 CYCLES
     Route: 065
  3. CARBOPLATIN [Suspect]
     Active Substance: CARBOPLATIN
     Dosage: ONE COURSE OF SECONDARY INTRA-ARTERIAL CHEMOTHERAPY
     Route: 013

REACTIONS (4)
  - Neoplasm recurrence [Unknown]
  - Febrile neutropenia [Unknown]
  - Therapy partial responder [Unknown]
  - Off label use [Unknown]
